FAERS Safety Report 25403845 (Version 1)
Quarter: 2025Q2

REPORT INFORMATION
  Report Type: Report from Study
  Country: US (occurrence: US)
  Receive Date: 20250606
  Receipt Date: 20250606
  Transmission Date: 20250716
  Serious: Yes (Hospitalization)
  Sender: ALEXION PHARMACEUTICALS
  Company Number: US-AstraZeneca-CH-00883578A

PATIENT
  Weight: 93.893 kg

DRUGS (10)
  1. ACALABRUTINIB [Suspect]
     Active Substance: ACALABRUTINIB
     Indication: B-cell lymphoma
     Dosage: 100 MILLIGRAM, QD
  2. ALFUZOSIN [Concomitant]
     Active Substance: ALFUZOSIN
     Route: 065
  3. AMLODIPINE BESYLATE [Concomitant]
     Active Substance: AMLODIPINE BESYLATE
     Route: 065
  4. BACTRIM DS [Concomitant]
     Active Substance: SULFAMETHOXAZOLE\TRIMETHOPRIM
     Route: 065
  5. CARVEDILOL [Concomitant]
     Active Substance: CARVEDILOL
     Route: 065
  6. ELIQUIS [Concomitant]
     Active Substance: APIXABAN
     Route: 065
  7. ISOSORBIDE MONONITRATE [Concomitant]
     Active Substance: ISOSORBIDE MONONITRATE
     Route: 065
  8. PREDNISONE [Concomitant]
     Active Substance: PREDNISONE
     Route: 065
  9. ROSUVASTATIN [Concomitant]
     Active Substance: ROSUVASTATIN
     Route: 065
  10. TACROLIMUS [Concomitant]
     Active Substance: TACROLIMUS
     Route: 065

REACTIONS (3)
  - Rib fracture [Unknown]
  - Blood urine present [Unknown]
  - Product dose omission issue [Unknown]
